FAERS Safety Report 7095815-8 (Version None)
Quarter: 2010Q4

REPORT INFORMATION
  Report Type: 
  Country: None (occurrence: None)
  Receive Date: 20101111
  Receipt Date: 20090303
  Transmission Date: 20110411
  Serious: No
  Sender: FDA-Public Use
  Company Number: US-KINGPHARMUSA00001-K200900223

PATIENT
  Sex: Female

DRUGS (2)
  1. LEVOXYL [Suspect]
     Dosage: 125 MCG, QD
     Route: 048
     Dates: end: 20090204
  2. LEVOXYL [Suspect]
     Dosage: 137 MCG, QD
     Route: 048
     Dates: start: 20090204, end: 20090201

REACTIONS (2)
  - DRUG INEFFECTIVE [None]
  - HYPERSENSITIVITY [None]
